FAERS Safety Report 9336316 (Version 1)
Quarter: 2013Q2

REPORT INFORMATION
  Report Type: Spontaneous
  Country: GB (occurrence: GB)
  Receive Date: 20130607
  Receipt Date: 20130607
  Transmission Date: 20140414
  Serious: Yes (Death)
  Sender: FDA-Public Use
  Company Number: GB-JNJFOC-20130602728

PATIENT
  Age: 93 Year
  Sex: Female
  Weight: 53 kg

DRUGS (7)
  1. XARELTO [Suspect]
     Indication: EMBOLISM VENOUS
     Route: 048
     Dates: start: 20130212, end: 20130404
  2. XARELTO [Suspect]
     Indication: PULMONARY EMBOLISM
     Route: 048
     Dates: start: 20130212, end: 20130404
  3. CALCIUM CARBONATE [Concomitant]
     Route: 065
  4. ASPIRIN [Concomitant]
     Route: 065
  5. CITALOPRAM [Concomitant]
     Route: 065
  6. FERROUS SULPHATE [Concomitant]
     Route: 065
  7. LANSOPRAZOLE [Concomitant]
     Route: 065

REACTIONS (2)
  - Cardiac arrest [Fatal]
  - Haemoglobin decreased [Unknown]
